FAERS Safety Report 12185087 (Version 1)
Quarter: 2016Q1

REPORT INFORMATION
  Report Type: Other
  Country: US (occurrence: US)
  Receive Date: 20160316
  Receipt Date: 20160316
  Transmission Date: 20160526
  Serious: Yes (Other)
  Sender: FDA-Public Use
  Company Number: UNT-2016-004134

PATIENT
  Age: 44 Year
  Sex: Female
  Weight: 131.7 kg

DRUGS (1)
  1. ORENITRAM [Suspect]
     Active Substance: TREPROSTINIL
     Indication: PULMONARY ARTERIAL HYPERTENSION
     Dosage: 1.5 MG, TID
     Route: 048
     Dates: start: 20160201

REACTIONS (6)
  - Vomiting [Unknown]
  - Blindness [Unknown]
  - No therapeutic response [Unknown]
  - Migraine [Unknown]
  - Presyncope [Unknown]
  - Drug dose omission [Unknown]

NARRATIVE: CASE EVENT DATE: 201602
